FAERS Safety Report 18903156 (Version 1)
Quarter: 2021Q1

REPORT INFORMATION
  Report Type: Spontaneous
  Country: US (occurrence: US)
  Receive Date: 20210217
  Receipt Date: 20210217
  Transmission Date: 20210420
  Serious: No
  Sender: FDA-Public Use
  Company Number: US-RECORDATI RARE DISEASES-2106890

PATIENT
  Age: 32 Year
  Sex: Female

DRUGS (2)
  1. CARBAGLU [Suspect]
     Active Substance: CARGLUMIC ACID
     Indication: N-ACETYLGLUTAMATE SYNTHASE DEFICIENCY
  2. CARBAGLU [Suspect]
     Active Substance: CARGLUMIC ACID

REACTIONS (2)
  - Gastrooesophageal reflux disease [Unknown]
  - Product dose omission in error [Unknown]
